FAERS Safety Report 8368555-2 (Version None)
Quarter: 2012Q2

REPORT INFORMATION
  Report Type: 
  Country: None (occurrence: None)
  Receive Date: 20120518
  Receipt Date: 20120509
  Transmission Date: 20120825
  Serious: Yes (Hospitalization)
  Sender: FDA-Public Use
  Company Number: US-BIOGENIDEC-2012BI016427

PATIENT
  Age: 46 Year
  Sex: Female

DRUGS (2)
  1. THYROID MEDICATION (NOS) [Concomitant]
     Indication: THYROID DISORDER
  2. AVONEX [Suspect]
     Indication: MULTIPLE SCLEROSIS
     Route: 030
     Dates: start: 20100728

REACTIONS (8)
  - MUSCULAR WEAKNESS [None]
  - MUSCULOSKELETAL STIFFNESS [None]
  - ABASIA [None]
  - JOINT SWELLING [None]
  - CONTUSION [None]
  - URINARY INCONTINENCE [None]
  - FALL [None]
  - ULTRASOUND BLADDER ABNORMAL [None]
